FAERS Safety Report 7060883-6 (Version None)
Quarter: 2010Q4

REPORT INFORMATION
  Report Type: 
  Country: None (occurrence: None)
  Receive Date: 20101025
  Receipt Date: 20101018
  Transmission Date: 20110411
  Serious: Yes (Hospitalization)
  Sender: FDA-Public Use
  Company Number: DE-MERCK-1007DEU00080

PATIENT
  Age: 47 Year
  Sex: Female
  Weight: 64 kg

DRUGS (2)
  1. SINGULAIR [Suspect]
     Indication: ASTHMA
     Route: 048
     Dates: start: 20100529, end: 20100615
  2. ACETAMINOPHEN [Concomitant]
     Route: 048

REACTIONS (3)
  - ARTHRALGIA [None]
  - ARTHRITIS [None]
  - EYE DISORDER [None]
